APPROVED DRUG PRODUCT: ETHACRYNIC ACID
Active Ingredient: ETHACRYNIC ACID
Strength: 25MG
Dosage Form/Route: TABLET;ORAL
Application: A205609 | Product #001 | TE Code: AB
Applicant: ADAPTIS PHARMA PRIVATE LTD
Approved: Jun 30, 2016 | RLD: No | RS: No | Type: RX